FAERS Safety Report 8967077 (Version 1)
Quarter: 2012Q4

REPORT INFORMATION
  Report Type: 
  Country: DE (occurrence: DE)
  Receive Date: 20121214
  Receipt Date: 20121214
  Transmission Date: 20130627
  Serious: Yes (Other)
  Sender: FDA-Public Use
  Company Number: DE-NAPPMUNDI-DEU-2012-0009975

PATIENT
  Sex: Female
  Weight: 58 kg

DRUGS (1)
  1. OXYGESIC [Suspect]
     Indication: PRODUCT USED FOR UNKNOWN INDICATION
     Route: 048

REACTIONS (6)
  - Psychotic disorder [Unknown]
  - Anxiety disorder [Unknown]
  - Constricted affect [Unknown]
  - Restlessness [Unknown]
  - Anxiety [Unknown]
  - Depression [Unknown]
